FAERS Safety Report 8236854-0 (Version None)
Quarter: 2012Q1

REPORT INFORMATION
  Report Type: 
  Country: None (occurrence: None)
  Receive Date: 20120327
  Receipt Date: 20111213
  Transmission Date: 20120608
  Serious: No
  Sender: FDA-Public Use
  Company Number: US-GLAXOSMITHKLINE-A0940378A

PATIENT
  Age: 64 Year
  Sex: Female

DRUGS (2)
  1. ASPIRIN [Concomitant]
  2. LAMICTAL [Suspect]
     Indication: SCIATICA
     Dosage: 100MG PER DAY
     Route: 048
     Dates: start: 20100101

REACTIONS (4)
  - CONSTIPATION [None]
  - HOT FLUSH [None]
  - ERYTHEMA [None]
  - TEMPERATURE INTOLERANCE [None]
